FAERS Safety Report 9011659 (Version 3)
Quarter: 2013Q3

REPORT INFORMATION
  Report Type: Report from Study
  Country: US (occurrence: US)
  Receive Date: 20130108
  Receipt Date: 20130917
  Transmission Date: 20140515
  Serious: Yes (Death)
  Sender: FDA-Public Use
  Company Number: US-ROCHE-1176766

PATIENT
  Sex: Male
  Weight: 66 kg

DRUGS (4)
  1. ZELBORAF [Suspect]
     Indication: NEOPLASM MALIGNANT
     Route: 048
     Dates: start: 20121029
  2. ZELBORAF [Suspect]
     Dosage: 4 TABELETS TWICE A DAY.
     Route: 048
     Dates: start: 20120813
  3. ZELBORAF [Suspect]
     Route: 048
     Dates: start: 20120907
  4. ZELBORAF [Suspect]
     Dosage: 4 TABELETS EVERY 12 HOURS
     Route: 048
     Dates: start: 20120831

REACTIONS (2)
  - Death [Fatal]
  - Underdose [Unknown]
